FAERS Safety Report 5452680-X (Version None)
Quarter: 2007Q3

REPORT INFORMATION
  Report Type: 
  Country: None (occurrence: None)
  Receive Date: 20070914
  Receipt Date: 20070905
  Transmission Date: 20080115
  Serious: Yes (Hospitalization)
  Sender: FDA-Public Use
  Company Number: FR-JNJFOC-20070901518

PATIENT
  Sex: Female
  Weight: 65 kg

DRUGS (5)
  1. HALDOL [Suspect]
     Indication: PSYCHOTIC DISORDER
     Route: 048
  2. SERESTA [Suspect]
     Indication: DRUG USE FOR UNKNOWN INDICATION
  3. PARKINANE LP [Suspect]
     Indication: DRUG USE FOR UNKNOWN INDICATION
     Route: 015
  4. IMOVANE [Suspect]
     Indication: DRUG USE FOR UNKNOWN INDICATION
  5. MEPRONIZINE [Suspect]
     Indication: DRUG USE FOR UNKNOWN INDICATION
     Route: 015

REACTIONS (3)
  - CAESAREAN SECTION [None]
  - DRUG EXPOSURE DURING PREGNANCY [None]
  - PREMATURE RUPTURE OF MEMBRANES [None]
